FAERS Safety Report 22897413 (Version 3)
Quarter: 2023Q4

REPORT INFORMATION
  Report Type: Spontaneous
  Country: US (occurrence: US)
  Receive Date: 20230902
  Receipt Date: 20231021
  Transmission Date: 20240110
  Serious: Yes (Hospitalization, Other)
  Sender: FDA-Public Use
  Company Number: US-TEVA-2023-US-2923300

PATIENT
  Age: 65 Year
  Sex: Female

DRUGS (3)
  1. UZEDY [Suspect]
     Active Substance: RISPERIDONE
     Indication: Schizoaffective disorder
     Dosage: 50 MG/Q1M
     Route: 065
  2. UZEDY [Suspect]
     Active Substance: RISPERIDONE
     Indication: Schizoaffective disorder bipolar type
     Dosage: 75 MG/Q1M
     Route: 065
  3. UZEDY [Suspect]
     Active Substance: RISPERIDONE
     Dosage: 50 MG / 0.14 ML
     Route: 065

REACTIONS (7)
  - Schizoaffective disorder [Unknown]
  - Agitation [Unknown]
  - Mania [Unknown]
  - Psychotic symptom [Unknown]
  - Drug ineffective [Unknown]
  - Off label use [Unknown]
  - Off label use [Unknown]
